FAERS Safety Report 12250687 (Version 1)
Quarter: 2016Q2

REPORT INFORMATION
  Report Type: Spontaneous
  Country: US (occurrence: US)
  Receive Date: 20160409
  Receipt Date: 20160409
  Transmission Date: 20160815
  Serious: Yes (Other)
  Sender: FDA-Public Use
  Company Number: US-ROXANE LABORATORIES, INC.-2016-RO-00613RO

PATIENT
  Age: 25 Year
  Sex: Male

DRUGS (3)
  1. LITHIUM CARBONATE CAPSULES USP, 150 MG [Suspect]
     Active Substance: LITHIUM CARBONATE
     Indication: AFFECTIVE DISORDER
     Route: 065
  2. THIORIDAZINE [Suspect]
     Active Substance: THIORIDAZINE
     Indication: PSYCHOTIC DISORDER
     Dosage: 127.5 MG
     Route: 065
  3. LORAZEPAM INTENSOL [Suspect]
     Active Substance: LORAZEPAM
     Indication: CATATONIA
     Route: 065

REACTIONS (2)
  - Cognitive disorder [Unknown]
  - Toxicity to various agents [Unknown]
